FAERS Safety Report 11053540 (Version 3)
Quarter: 2015Q2

REPORT INFORMATION
  Report Type: Spontaneous
  Country: US (occurrence: US)
  Receive Date: 20150421
  Receipt Date: 20150526
  Transmission Date: 20150821
  Serious: No
  Sender: FDA-Public Use
  Company Number: US-JNJFOC-20150100388

PATIENT
  Age: 57 Year
  Sex: Female
  Weight: 68.49 kg

DRUGS (1)
  1. RISPERDAL CONSTA [Suspect]
     Active Substance: RISPERIDONE
     Indication: SCHIZOPHRENIA
     Route: 030

REACTIONS (3)
  - Lack of injection site rotation [Unknown]
  - Medical device complication [Unknown]
  - Underdose [Unknown]

NARRATIVE: CASE EVENT DATE: 20141223
